FAERS Safety Report 7292771-4 (Version None)
Quarter: 2011Q1

REPORT INFORMATION
  Report Type: 
  Country: None (occurrence: None)
  Receive Date: 20110215
  Receipt Date: 20110207
  Transmission Date: 20110831
  Serious: Yes (Death)
  Sender: FDA-Public Use
  Company Number: US-SANOFI-AVENTIS-2010SA033809

PATIENT
  Age: 28 Year
  Sex: Male
  Weight: 83.91 kg

DRUGS (7)
  1. AMBIEN [Interacting]
     Indication: SLEEP DISORDER
     Route: 048
  2. MORPHINE [Suspect]
     Route: 065
  3. ZOLPIDEM TARTRATE [Concomitant]
     Route: 048
  4. ASMANEX TWISTHALER [Concomitant]
  5. CYCLOBENZAPRINE [Suspect]
     Route: 065
  6. ACETAMINOPHEN [Suspect]
     Route: 065
  7. HYDROCODONE [Suspect]
     Route: 065

REACTIONS (9)
  - ARRHYTHMIA [None]
  - RESPIRATORY DEPRESSION [None]
  - ANXIETY [None]
  - SUICIDAL IDEATION [None]
  - DRUG INTERACTION [None]
  - LOSS OF CONSCIOUSNESS [None]
  - SOMNAMBULISM [None]
  - DEPRESSION [None]
  - TOXICITY TO VARIOUS AGENTS [None]
